FAERS Safety Report 21341569 (Version 1)
Quarter: 2022Q3

REPORT INFORMATION
  Report Type: Spontaneous
  Country: US (occurrence: None)
  Receive Date: 20220915
  Receipt Date: 20220915
  Transmission Date: 20221026
  Serious: Yes (Life-Threatening)
  Sender: FDA-Public Use
  Company Number: None

PATIENT
  Age: 43 Year
  Sex: Male
  Weight: 51.71 kg

DRUGS (1)
  1. OCREVUS [Suspect]
     Active Substance: OCRELIZUMAB

REACTIONS (5)
  - Sepsis [None]
  - Acute kidney injury [None]
  - Hepatic mass [None]
  - Metastatic squamous cell carcinoma [None]
  - Pneumonia aspiration [None]

NARRATIVE: CASE EVENT DATE: 20220902
